FAERS Safety Report 25571633 (Version 1)
Quarter: 2025Q3

REPORT INFORMATION
  Report Type: Report from Study
  Country: CN (occurrence: CN)
  Receive Date: 20250717
  Receipt Date: 20250717
  Transmission Date: 20251021
  Serious: Yes (Other)
  Sender: ROCHE
  Company Number: CN-ROCHE-10000336740

PATIENT

DRUGS (11)
  1. TRASTUZUMAB [Suspect]
     Active Substance: TRASTUZUMAB
     Indication: HER2 positive gastric cancer
     Route: 065
  2. ATEZOLIZUMAB [Suspect]
     Active Substance: ATEZOLIZUMAB
     Indication: HER2 positive gastric cancer
     Route: 065
  3. CISPLATIN [Suspect]
     Active Substance: CISPLATIN
     Indication: HER2 positive gastric cancer
     Route: 065
  4. FLUOROURACIL [Suspect]
     Active Substance: FLUOROURACIL
     Indication: HER2 positive gastric cancer
     Route: 065
  5. OXALIPLATIN [Suspect]
     Active Substance: OXALIPLATIN
     Indication: HER2 positive gastric cancer
     Route: 065
  6. TORIPALIMAB [Suspect]
     Active Substance: TORIPALIMAB
     Indication: HER2 positive gastric cancer
     Route: 065
  7. SINTILIMAB [Suspect]
     Active Substance: SINTILIMAB
     Indication: HER2 positive gastric cancer
     Route: 065
  8. PEMBROLIZUMAB [Suspect]
     Active Substance: PEMBROLIZUMAB
     Indication: HER2 positive gastric cancer
     Route: 065
  9. NIVOLUMAB [Suspect]
     Active Substance: NIVOLUMAB
     Indication: HER2 positive gastric cancer
     Route: 065
  10. CAMRELIZUMAB [Suspect]
     Active Substance: CAMRELIZUMAB
     Indication: HER2 positive gastric cancer
     Route: 065
  11. TISLELIZUMAB [Suspect]
     Active Substance: TISLELIZUMAB
     Indication: HER2 positive gastric cancer
     Route: 065

REACTIONS (8)
  - Pneumonia [Unknown]
  - Intestinal obstruction [Unknown]
  - Liver injury [Unknown]
  - Myocardial injury [Unknown]
  - Pneumothorax [Unknown]
  - Pleural effusion [Unknown]
  - Abdominal infection [Unknown]
  - Emphysema [Unknown]
